FAERS Safety Report 4268728-4 (Version None)
Quarter: 2004Q1

REPORT INFORMATION
  Report Type: 
  Country: None (occurrence: None)
  Receive Date: 20040112
  Receipt Date: 20040112
  Transmission Date: 20041129
  Serious: Yes (Other)
  Sender: FDA-Public Use
  Company Number: None

PATIENT
  Age: 69 Year

DRUGS (5)
  1. FENTANYL (SUBLIMAZE) 50 MCG/ML ABBOTT LABS [Suspect]
     Indication: HERNIA REPAIR
     Dosage: 20 MCG IV X 1
     Route: 042
     Dates: start: 20040107
  2. SEVO [Concomitant]
  3. PROPOFOL [Concomitant]
  4. ZIMURON [Concomitant]
  5. .. [Concomitant]

REACTIONS (4)
  - BLOOD PRESSURE DECREASED [None]
  - COLD SWEAT [None]
  - DIZZINESS [None]
  - PALLOR [None]
